FAERS Safety Report 7651275-7 (Version None)
Quarter: 2011Q3

REPORT INFORMATION
  Report Type: 
  Country: None (occurrence: None)
  Receive Date: 20110802
  Receipt Date: 20110726
  Transmission Date: 20111222
  Serious: Yes (Other)
  Sender: FDA-Public Use
  Company Number: US-ABBOTT-11P-163-0733782-00

PATIENT
  Sex: Male
  Weight: 71.278 kg

DRUGS (4)
  1. HUMIRA [Suspect]
     Indication: CROHN'S DISEASE
     Route: 058
     Dates: start: 20110201, end: 20110401
  2. HUMIRA [Suspect]
     Route: 058
     Dates: start: 20110401, end: 20110501
  3. HUMIRA [Suspect]
     Route: 058
     Dates: start: 20110501, end: 20110613
  4. MULTI-VITAMIN [Concomitant]
     Indication: PRODUCT USED FOR UNKNOWN INDICATION

REACTIONS (44)
  - TOXICITY TO VARIOUS AGENTS [None]
  - FATIGUE [None]
  - FREQUENT BOWEL MOVEMENTS [None]
  - PYREXIA [None]
  - PALPITATIONS [None]
  - ADVERSE DRUG REACTION [None]
  - PAIN [None]
  - ABSCESS [None]
  - RASH [None]
  - DYSAESTHESIA [None]
  - MYOPATHY [None]
  - INFLAMMATION [None]
  - ASTHENIA [None]
  - PERINEAL ABSCESS [None]
  - ARTHRALGIA [None]
  - MALAISE [None]
  - LUPUS-LIKE SYNDROME [None]
  - PAIN IN EXTREMITY [None]
  - MOBILITY DECREASED [None]
  - MYALGIA [None]
  - INSOMNIA [None]
  - ANORECTAL DISORDER [None]
  - ABDOMINAL DISTENSION [None]
  - PROCTALGIA [None]
  - HYPERHIDROSIS [None]
  - SWELLING FACE [None]
  - PAIN IN JAW [None]
  - ANTINUCLEAR ANTIBODY POSITIVE [None]
  - SUNBURN [None]
  - FLUSHING [None]
  - HOT FLUSH [None]
  - DIARRHOEA [None]
  - MUSCLE SPASMS [None]
  - PERINEAL PAIN [None]
  - URTICARIA [None]
  - FISTULA [None]
  - FACIAL PAIN [None]
  - BACK PAIN [None]
  - DECREASED APPETITE [None]
  - MUSCULOSKELETAL PAIN [None]
  - HYPOTONIA [None]
  - ABSCESS RUPTURE [None]
  - PRURITUS [None]
  - MUSCULOSKELETAL DISCOMFORT [None]
